FAERS Safety Report 18540553 (Version 1)
Quarter: 2020Q4

REPORT INFORMATION
  Report Type: Report from Study
  Country: AU (occurrence: AU)
  Receive Date: 20201124
  Receipt Date: 20201124
  Transmission Date: 20210114
  Serious: Yes (Other)
  Sender: FDA-Public Use
  Company Number: AU-VERTEX PHARMACEUTICALS-2020-022899

PATIENT
  Sex: Female
  Weight: 48 kg

DRUGS (2)
  1. CREON [Concomitant]
     Active Substance: PANCRELIPASE AMYLASE\PANCRELIPASE LIPASE\PANCRELIPASE PROTEASE
     Dosage: 25000 UNK
  2. ELEXACAFTOR/TEZACAFTOR/IVACAFTOR AND IVACAFTOR [Suspect]
     Active Substance: ELEXACAFTOR\IVACAFTOR\TEZACAFTOR
     Indication: CYSTIC FIBROSIS
     Dosage: 2 TABS (ELEXACAFTOR/TEZACAFTOR/IVACAFTOR) AM; 1 TAB (IVACAFTOR) PM
     Route: 048
     Dates: start: 20190925

REACTIONS (1)
  - Hypnopompic hallucination [Not Recovered/Not Resolved]

NARRATIVE: CASE EVENT DATE: 2019
